FAERS Safety Report 11286328 (Version 1)
Quarter: 2015Q3

REPORT INFORMATION
  Report Type: Report from Study
  Country: US (occurrence: US)
  Receive Date: 20150721
  Receipt Date: 20150721
  Transmission Date: 20151125
  Serious: Yes (Other)
  Sender: FDA-Public Use
  Company Number: US-ABBVIE-15K-163-1427271-00

PATIENT
  Age: 11 Year
  Sex: Female

DRUGS (1)
  1. HUMIRA [Suspect]
     Active Substance: ADALIMUMAB
     Indication: CROHN^S DISEASE
     Route: 065
     Dates: start: 20141110

REACTIONS (6)
  - Wrist fracture [Recovered/Resolved]
  - Fatigue [Not Recovered/Not Resolved]
  - Rash pustular [Unknown]
  - Pyogenic granuloma [Recovered/Resolved]
  - Staphylococcal infection [Unknown]
  - Red blood cell sedimentation rate increased [Unknown]

NARRATIVE: CASE EVENT DATE: 20141110
